FAERS Safety Report 12680107 (Version 1)
Quarter: 2016Q3

REPORT INFORMATION
  Report Type: Spontaneous
  Country: US (occurrence: None)
  Receive Date: 20160823
  Receipt Date: 20160823
  Transmission Date: 20161109
  Serious: Yes (Life-Threatening, Hospitalization)
  Sender: FDA-Public Use
  Company Number: None

PATIENT
  Age: 86 Year
  Sex: Female
  Weight: 48.08 kg

DRUGS (1)
  1. APIXABAN, 2.5 MG [Suspect]
     Active Substance: APIXABAN
     Indication: ATRIAL FIBRILLATION
     Route: 048
     Dates: end: 20160506

REACTIONS (4)
  - Pulmonary haemorrhage [None]
  - Haemoptysis [None]
  - Dyspnoea [None]
  - Haemoglobin decreased [None]

NARRATIVE: CASE EVENT DATE: 20160506
